FAERS Safety Report 14215157 (Version 2)
Quarter: 2017Q4

REPORT INFORMATION
  Report Type: Spontaneous
  Country: DE (occurrence: DE)
  Receive Date: 20171122
  Receipt Date: 20171128
  Transmission Date: 20180321
  Serious: Yes (Other)
  Sender: FDA-Public Use
  Company Number: DE-ROCHE-2027566

PATIENT
  Sex: Female

DRUGS (1)
  1. KLONOPIN [Suspect]
     Active Substance: CLONAZEPAM
     Indication: PRODUCT USED FOR UNKNOWN INDICATION
     Route: 048

REACTIONS (5)
  - Dysphagia [Unknown]
  - Drug ineffective [Unknown]
  - Parkinson^s disease [Not Recovered/Not Resolved]
  - Epilepsy [Recovered/Resolved]
  - Sleep disorder [Not Recovered/Not Resolved]
